FAERS Safety Report 8660664 (Version 2)
Quarter: 2012Q4

REPORT INFORMATION
  Report Type: 
  Country: US (occurrence: US)
  Receive Date: 20120711
  Receipt Date: 20120928
  Transmission Date: 20130627
  Serious: Yes (Hospitalization, Other)
  Sender: FDA-Public Use
  Company Number: US-ELI_LILLY_AND_COMPANY-US201207000251

PATIENT
  Age: 69 Year
  Sex: Female
  Weight: 125.62 kg

DRUGS (3)
  1. HUMULIN REGULAR [Suspect]
     Indication: DIABETES MELLITUS
     Dosage: 24 u, each morning
     Dates: start: 2000
  2. HUMULIN REGULAR [Suspect]
     Dosage: 18 u, each evening
     Dates: start: 2000
  3. METFORMIN [Concomitant]

REACTIONS (5)
  - Breast cancer [Unknown]
  - Hypoglycaemic coma [Recovered/Resolved]
  - Foaming at mouth [Recovered/Resolved]
  - Discomfort [Not Recovered/Not Resolved]
  - Blood glucose increased [Not Recovered/Not Resolved]
